FAERS Safety Report 12647894 (Version 1)
Quarter: 2016Q3

REPORT INFORMATION
  Report Type: Spontaneous
  Country: FR (occurrence: FR)
  Receive Date: 20160812
  Receipt Date: 20160812
  Transmission Date: 20161109
  Serious: Yes (Hospitalization)
  Sender: FDA-Public Use
  Company Number: FR-PFIZER INC-2016371561

PATIENT
  Age: 10 Year
  Sex: Male
  Weight: 45 kg

DRUGS (11)
  1. VINCRISTINE SULFATE. [Suspect]
     Active Substance: VINCRISTINE SULFATE
     Dosage: UNK
     Dates: start: 20160707
  2. ARACYTINE [Suspect]
     Active Substance: CYTARABINE
     Indication: T-CELL TYPE ACUTE LEUKAEMIA
     Dosage: 30 MG, SINGLE
     Route: 037
     Dates: start: 20160622, end: 20160622
  3. PENTACARINAT [Concomitant]
     Active Substance: PENTAMIDINE ISETHIONATE
     Dosage: UNK
  4. PURINETHOL [Suspect]
     Active Substance: MERCAPTOPURINE
     Dosage: UNK
     Dates: start: 20160707
  5. PURINETHOL [Suspect]
     Active Substance: MERCAPTOPURINE
     Indication: T-CELL TYPE ACUTE LEUKAEMIA
     Dosage: 50 MG DAILY EXCEPT 100 MG DAILY ON SATURDAY AND SUNDAY
     Route: 048
     Dates: start: 20160621, end: 20160628
  6. METHOTREXATE (METHOTREXATE SODIUM) [Suspect]
     Active Substance: METHOTREXATE SODIUM
     Dosage: 15 MG, SINGLE
     Route: 037
     Dates: start: 20160622, end: 20160622
  7. METHOTREXATE SODIUM. [Suspect]
     Active Substance: METHOTREXATE SODIUM
     Indication: T-CELL TYPE ACUTE LEUKAEMIA
     Dosage: 32.5 MG, SINGLE
     Route: 048
     Dates: start: 20160628, end: 20160628
  8. FOLINIC ACID [Concomitant]
     Active Substance: LEUCOVORIN
     Dosage: UNK
     Dates: start: 20160623, end: 20160623
  9. VINCRISTINE SULFATE. [Suspect]
     Active Substance: VINCRISTINE SULFATE
     Indication: T-CELL TYPE ACUTE LEUKAEMIA
     Dosage: 2 MG, SINGLE
     Route: 042
     Dates: start: 20160621, end: 20160621
  10. METHOTREXATE (METHOTREXATE SODIUM) [Suspect]
     Active Substance: METHOTREXATE SODIUM
     Indication: T-CELL TYPE ACUTE LEUKAEMIA
     Dosage: 6850 MG, SINGLE
     Route: 042
     Dates: start: 20160621, end: 20160621
  11. CORTANCYL [Concomitant]
     Active Substance: PREDNISONE
     Indication: T-CELL TYPE ACUTE LEUKAEMIA
     Dosage: 50 MG, UNK
     Dates: start: 20160621, end: 20160621

REACTIONS (2)
  - Febrile bone marrow aplasia [Recovered/Resolved]
  - Stomatitis [Recovering/Resolving]

NARRATIVE: CASE EVENT DATE: 201606
